FAERS Safety Report 11754135 (Version 1)
Quarter: 2015Q4

REPORT INFORMATION
  Report Type: Spontaneous
  Country: IT (occurrence: IT)
  Receive Date: 20151119
  Receipt Date: 20151119
  Transmission Date: 20160304
  Serious: Yes (Other)
  Sender: FDA-Public Use
  Company Number: PHHY2015IT148860

PATIENT
  Age: 42 Year
  Sex: Male

DRUGS (1)
  1. FTY [Suspect]
     Active Substance: FINGOLIMOD HYDROCHLORIDE
     Indication: RELAPSING-REMITTING MULTIPLE SCLEROSIS
     Dosage: 0.5 MG, QD
     Route: 048

REACTIONS (5)
  - Pruritus [Unknown]
  - Rash macular [Unknown]
  - Paraesthesia [Unknown]
  - Oedema peripheral [Unknown]
  - Peripheral vascular disorder [Unknown]
